FAERS Safety Report 18218966 (Version 1)
Quarter: 2020Q3

REPORT INFORMATION
  Report Type: Other
  Country: CA (occurrence: CA)
  Receive Date: 20200901
  Receipt Date: 20200901
  Transmission Date: 20201103
  Serious: Yes (Hospitalization, Other)
  Sender: FDA-Public Use
  Company Number: CA-ROCHE-2269108

PATIENT
  Age: 77 Year
  Sex: Male

DRUGS (9)
  1. ESBRIET [Suspect]
     Active Substance: PIRFENIDONE
     Route: 048
     Dates: start: 201902, end: 20200502
  2. ESBRIET [Suspect]
     Active Substance: PIRFENIDONE
     Route: 048
     Dates: start: 201902, end: 201902
  3. RANITIDINE. [Concomitant]
     Active Substance: RANITIDINE
  4. WARFARIN [Concomitant]
     Active Substance: WARFARIN
     Indication: AORTIC ANEURYSM
  5. RAMIPRIL. [Concomitant]
     Active Substance: RAMIPRIL
  6. ROSUVASTATIN. [Concomitant]
     Active Substance: ROSUVASTATIN
  7. ESBRIET [Suspect]
     Active Substance: PIRFENIDONE
     Indication: IDIOPATHIC PULMONARY FIBROSIS
     Route: 048
     Dates: start: 20190131, end: 201902
  8. AMLODIPINE [Concomitant]
     Active Substance: AMLODIPINE BESYLATE
  9. TAMSULOSIN [Concomitant]
     Active Substance: TAMSULOSIN

REACTIONS (12)
  - Dyspepsia [Unknown]
  - Feeding disorder [Unknown]
  - Anxiety [Not Recovered/Not Resolved]
  - Fatigue [Not Recovered/Not Resolved]
  - Aortic aneurysm [Unknown]
  - Sleep disorder [Not Recovered/Not Resolved]
  - Choking [Unknown]
  - Parosmia [Unknown]
  - Decreased appetite [Recovering/Resolving]
  - Pancreatitis [Unknown]
  - Thrombosis [Unknown]
  - Insomnia [Not Recovered/Not Resolved]

NARRATIVE: CASE EVENT DATE: 201902
